FAERS Safety Report 6245169-1 (Version None)
Quarter: 2009Q2

REPORT INFORMATION
  Report Type: 
  Country: None (occurrence: None)
  Receive Date: 20090625
  Receipt Date: 20090617
  Transmission Date: 20091009
  Serious: Yes (Hospitalization)
  Sender: FDA-Public Use
  Company Number: JP-ABBOTT-05P-087-0317925-00

PATIENT
  Sex: Male
  Weight: 82 kg

DRUGS (23)
  1. KALETRA [Suspect]
     Indication: HIV INFECTION
     Route: 048
     Dates: start: 20041001, end: 20061120
  2. KALETRA [Suspect]
  3. KALETRA [Suspect]
     Indication: HIV INFECTION
     Dates: start: 20061121
  4. LAMIVUDINE [Suspect]
     Indication: HIV INFECTION
     Route: 048
     Dates: start: 20041001
  5. STAVUDINE [Suspect]
     Indication: HIV INFECTION
     Route: 048
     Dates: start: 20041001, end: 20051214
  6. ABACAVIR [Suspect]
     Indication: HIV INFECTION
     Route: 048
     Dates: start: 20051215
  7. ARGATROBAN [Concomitant]
     Indication: CEREBRAL INFARCTION
     Route: 042
     Dates: start: 20031220, end: 20031221
  8. ARGATROBAN [Concomitant]
     Route: 042
     Dates: start: 20031222, end: 20031227
  9. BENZATHINE PENICILLIN G [Concomitant]
     Indication: SYPHILIS
     Dosage: TOTAL DAILY DOSE: 2400X 10^4 UNIT
     Dates: start: 20031221, end: 20040109
  10. BETAMETHASONE SODIUM PHOSPHATE [Concomitant]
     Indication: UVEITIS
     Route: 057
     Dates: start: 20031225, end: 20040205
  11. TROPICAMIDE PHENYLEPHRINE HYDROCHLORIDE [Concomitant]
     Indication: UVEITIS
     Route: 057
     Dates: start: 20031225, end: 20040205
  12. PREDNISOLONE [Concomitant]
     Indication: UVEITIS
     Dates: start: 20040109, end: 20040122
  13. PREDNISOLONE [Concomitant]
     Route: 048
     Dates: start: 20040122, end: 20040218
  14. PREDNISOLONE [Concomitant]
     Route: 048
     Dates: start: 20040219, end: 20040317
  15. PREDNISOLONE [Concomitant]
     Route: 048
     Dates: start: 20040318, end: 20040414
  16. PREDNISOLONE [Concomitant]
     Dosage: 0.83-1.25MG
     Route: 048
     Dates: start: 20040415, end: 20040610
  17. ASPIRIN [Concomitant]
     Indication: CEREBRAL INFARCTION
     Route: 048
     Dates: start: 20031221
  18. SULFAMETHOXAZOLE AND TRIMETHOPRIM [Concomitant]
     Indication: ANTIFUNGAL PROPHYLAXIS
     Route: 048
     Dates: start: 20031228, end: 20040106
  19. PENTAMIDINE ISETHIONATE [Concomitant]
     Indication: ANTIFUNGAL PROPHYLAXIS
     Route: 055
     Dates: start: 20040114, end: 20041014
  20. FLUCONAZOLE [Concomitant]
     Indication: ORAL CANDIDIASIS
     Dates: start: 20040114, end: 20040116
  21. LOPERAMIDE HYDROCHLORIDE [Concomitant]
     Indication: PROPHYLAXIS AGAINST DIARRHOEA
     Route: 048
     Dates: start: 20041001
  22. AMOXICILLIN [Concomitant]
     Indication: SYPHILIS
     Route: 048
     Dates: start: 20060629, end: 20060911
  23. PROBENECID [Concomitant]
     Indication: SYPHILIS
     Route: 048
     Dates: start: 20060629, end: 20060911

REACTIONS (6)
  - BLOOD ALKALINE PHOSPHATASE INCREASED [None]
  - BLOOD TRIGLYCERIDES INCREASED [None]
  - DIARRHOEA [None]
  - FALL [None]
  - LOWER LIMB FRACTURE [None]
  - SYPHILIS [None]
